FAERS Safety Report 8526036-7 (Version None)
Quarter: 2012Q3

REPORT INFORMATION
  Report Type: 
  Country: None (occurrence: None)
  Receive Date: 20120720
  Receipt Date: 20120711
  Transmission Date: 20120928
  Serious: Yes (Hospitalization)
  Sender: FDA-Public Use
  Company Number: FR-BAXTER-2012BAX011027

PATIENT
  Sex: Male

DRUGS (13)
  1. FLUDARA [Suspect]
     Route: 048
     Dates: start: 20120428, end: 20120430
  2. PHOSPHONEUROS [Concomitant]
     Route: 048
  3. MAG 2 [Concomitant]
     Route: 048
  4. DEDROGYL [Concomitant]
     Dosage: 15MG/100ML
     Route: 048
  5. VALACYCLOVIR HYDROCHLORIDE [Concomitant]
     Route: 048
     Dates: start: 20120507
  6. MABTHERA [Suspect]
     Route: 042
     Dates: start: 20120601, end: 20120601
  7. FLUDARA [Suspect]
     Route: 048
     Dates: start: 20120602, end: 20120604
  8. ESCITALOPRAM [Concomitant]
     Route: 048
  9. CYCLOPHOSPHAMIDE [Suspect]
     Route: 048
     Dates: start: 20120602, end: 20120604
  10. BACTRIM [Concomitant]
     Dosage: 1 TABLET
     Route: 048
     Dates: start: 20120527
  11. DIFRAREL [Concomitant]
     Route: 048
  12. CYCLOPHOSPHAMIDE [Suspect]
     Route: 048
     Dates: start: 20120428, end: 20120430
  13. MABTHERA [Suspect]
     Route: 042
     Dates: start: 20120427, end: 20120427

REACTIONS (6)
  - NEUTROPENIA [None]
  - ALANINE AMINOTRANSFERASE INCREASED [None]
  - OEDEMA PERIPHERAL [None]
  - RASH MACULO-PAPULAR [None]
  - BLOOD CREATININE INCREASED [None]
  - PYREXIA [None]
